FAERS Safety Report 22112539 (Version 1)
Quarter: 2023Q1

REPORT INFORMATION
  Report Type: Spontaneous
  Country: ZA (occurrence: ZA)
  Receive Date: 20230319
  Receipt Date: 20230319
  Transmission Date: 20230417
  Serious: Yes (Other)
  Sender: FDA-Public Use
  Company Number: ZA-JNJFOC-20230343697

PATIENT

DRUGS (2)
  1. ERLEADA [Suspect]
     Active Substance: APALUTAMIDE
     Indication: Product used for unknown indication
     Route: 048
  2. ERLEADA [Suspect]
     Active Substance: APALUTAMIDE
     Dosage: REDUCED DOSE
     Route: 048

REACTIONS (2)
  - Neutropenia [Unknown]
  - White blood cell count decreased [Unknown]
